FAERS Safety Report 22609999 (Version 1)
Quarter: 2023Q2

REPORT INFORMATION
  Report Type: Report from Study
  Country: CA (occurrence: CA)
  Receive Date: 20230616
  Receipt Date: 20230616
  Transmission Date: 20230722
  Serious: Yes (Death, Other)
  Sender: FDA-Public Use
  Company Number: CA-PFIZER INC-PV202300105943

PATIENT

DRUGS (2)
  1. METHOTREXATE SODIUM [Interacting]
     Active Substance: METHOTREXATE SODIUM
     Indication: Chemotherapy
     Dosage: UNK
  2. PENICILLIN [Interacting]
     Active Substance: PENICILLIN
     Dosage: UNK

REACTIONS (1)
  - Drug interaction [Fatal]
